FAERS Safety Report 11000627 (Version 1)
Quarter: 2015Q2

REPORT INFORMATION
  Report Type: Spontaneous
  Country: US (occurrence: US)
  Receive Date: 20150408
  Receipt Date: 20150408
  Transmission Date: 20150821
  Serious: No
  Sender: FDA-Public Use
  Company Number: US-SA-2014SA138451

PATIENT

DRUGS (3)
  1. ALLEGRA [Suspect]
     Active Substance: FEXOFENADINE HYDROCHLORIDE
     Route: 048
  2. MUCINEX [Suspect]
     Active Substance: GUAIFENESIN
     Route: 065
  3. ADVIL [Suspect]
     Active Substance: IBUPROFEN
     Route: 065

REACTIONS (2)
  - Adverse reaction [Unknown]
  - Drug ineffective [Unknown]
